FAERS Safety Report 8901029 (Version 1)
Quarter: 2012Q4

REPORT INFORMATION
  Report Type: 
  Country: CN (occurrence: CN)
  Receive Date: 20121109
  Receipt Date: 20121109
  Transmission Date: 20130627
  Serious: Yes (Hospitalization)
  Sender: FDA-Public Use
  Company Number: CN-B.I. PHARMACEUTICALS,INC./RIDGEFIELD-2012-CS-01456CS

PATIENT
  Age: 74 Year
  Sex: Male

DRUGS (3)
  1. MICARDIS [Suspect]
     Indication: HYPERTENSION
     Dosage: 80 mg
  2. ASPIRIN ENTERIC-COATED TABLETS [Concomitant]
     Dates: start: 201207
  3. NORVASC [Concomitant]
     Indication: HYPERTENSION
     Dosage: 5 mg
     Dates: end: 201207

REACTIONS (5)
  - Jaundice [Unknown]
  - Arrhythmia [Unknown]
  - Blood creatinine increased [Unknown]
  - Haemoglobin decreased [Unknown]
  - Diarrhoea [Not Recovered/Not Resolved]
